FAERS Safety Report 23706262 (Version 4)
Quarter: 2024Q4

REPORT INFORMATION
  Report Type: Spontaneous
  Country: US (occurrence: US)
  Receive Date: 20240404
  Receipt Date: 20241202
  Transmission Date: 20250114
  Serious: No
  Sender: SANOFI AVENTIS
  Company Number: US-SA-SAC20240401000834

PATIENT
  Age: 49 Year
  Sex: Male

DRUGS (4)
  1. DUPIXENT [Suspect]
     Active Substance: DUPILUMAB
     Indication: Dermatitis atopic
     Dosage: 300 MG, QOW
     Route: 058
     Dates: start: 202211
  2. DUPIXENT [Suspect]
     Active Substance: DUPILUMAB
     Indication: Eczema nummular
  3. KEFLEX [Concomitant]
     Active Substance: CEPHALEXIN
     Dosage: UNK
  4. PREDNISONE [Concomitant]
     Active Substance: PREDNISONE
     Dosage: UNK

REACTIONS (9)
  - Rash erythematous [Unknown]
  - Rash macular [Unknown]
  - Lymphadenopathy [Unknown]
  - Pruritus [Unknown]
  - Skin burning sensation [Unknown]
  - Condition aggravated [Unknown]
  - Dermatitis atopic [Unknown]
  - Vision blurred [Unknown]
  - Paraesthesia [Unknown]

NARRATIVE: CASE EVENT DATE: 20240201
